FAERS Safety Report 4499728-7 (Version None)
Quarter: 2004Q4

REPORT INFORMATION
  Report Type: 
  Country: None (occurrence: None)
  Receive Date: 20041110
  Receipt Date: 20041110
  Transmission Date: 20050328
  Serious: Yes (Hospitalization)
  Sender: FDA-Public Use
  Company Number: None

PATIENT
  Age: 53 Year
  Sex: Male
  Weight: 95.2554 kg

DRUGS (5)
  1. FLUOROURACIL [Suspect]
     Indication: RECTAL CANCER
     Dosage: 1000MG/M2/DAY-IV, BSA 2
     Route: 042
     Dates: start: 20041018
  2. SANDOSTATIN LAR [Suspect]
     Indication: DIARRHOEA
     Dosage: IM-30MG GIVEN ONCE
     Route: 030
     Dates: start: 20041014
  3. SANDOSTATIN LAR [Suspect]
     Indication: PROPHYLAXIS
     Dosage: IM-30MG GIVEN ONCE
     Route: 030
     Dates: start: 20041014
  4. LIPITOR [Concomitant]
  5. RADIATION THERAPY [Concomitant]

REACTIONS (8)
  - BLISTER [None]
  - CANDIDIASIS [None]
  - ERYTHEMA [None]
  - HAEMORRHAGE [None]
  - HEART RATE INCREASED [None]
  - MARKEDLY REDUCED DIETARY INTAKE [None]
  - ORAL MUCOSAL BLISTERING [None]
  - SKIN DESQUAMATION [None]
